FAERS Safety Report 9376918 (Version 1)
Quarter: 2013Q3

REPORT INFORMATION
  Report Type: Spontaneous
  Country: US (occurrence: US)
  Receive Date: 20130701
  Receipt Date: 20130701
  Transmission Date: 20140515
  Serious: Yes (Hospitalization, Other)
  Sender: FDA-Public Use
  Company Number: PHEH2013US013659

PATIENT
  Sex: Female

DRUGS (2)
  1. AFINITOR [Suspect]
     Indication: BREAST CANCER METASTATIC
     Route: 048
     Dates: end: 20130424
  2. AROMASIN [Suspect]
     Indication: BREAST CANCER METASTATIC

REACTIONS (6)
  - Cardiac failure congestive [Unknown]
  - Orthopnoea [Unknown]
  - Oedema peripheral [Recovered/Resolved]
  - Cardiomyopathy [Unknown]
  - Ejection fraction decreased [Unknown]
  - Pneumonitis [Recovered/Resolved]
